FAERS Safety Report 9758938 (Version 1)
Quarter: 2013Q4

REPORT INFORMATION
  Report Type: Spontaneous
  Country: US (occurrence: None)
  Receive Date: 20131216
  Receipt Date: 20131216
  Transmission Date: 20140711
  Serious: Yes (Hospitalization)
  Sender: FDA-Public Use
  Company Number: 080488

PATIENT
  Sex: 0

DRUGS (5)
  1. CIMZIA [Suspect]
     Dosage: (UNKNOWN DOSE SUBCUTANEOUS)
  2. CORTIFOAM [Concomitant]
  3. PENTASA [Concomitant]
  4. CIPRO /00697201/ [Concomitant]
  5. METHOTREXATE [Concomitant]

REACTIONS (2)
  - Hospitalisation [None]
  - Drug ineffective [None]
